FAERS Safety Report 4665149-7 (Version None)
Quarter: 2005Q2

REPORT INFORMATION
  Report Type: 
  Country: None (occurrence: None)
  Receive Date: 20050517
  Receipt Date: 20050502
  Transmission Date: 20051028
  Serious: Yes (Hospitalization)
  Sender: FDA-Public Use
  Company Number: FR_050406202

PATIENT
  Age: 44 Year
  Sex: Male

DRUGS (2)
  1. ZYPREXA [Suspect]
     Indication: SCHIZOPHRENIA
     Dosage: 5 MG DAY
     Dates: start: 20041123, end: 20050321
  2. ROSUVASTATIN CALCIUM [Concomitant]

REACTIONS (3)
  - ALCOHOL POISONING [None]
  - DELUSION [None]
  - HALLUCINATION [None]
